FAERS Safety Report 6524665-3 (Version None)
Quarter: 2010Q1

REPORT INFORMATION
  Report Type: 
  Country: None (occurrence: None)
  Receive Date: 20100104
  Receipt Date: 20091221
  Transmission Date: 20100710
  Serious: Yes (Hospitalization)
  Sender: FDA-Public Use
  Company Number: JP-AMGEN-US382371

PATIENT
  Age: 76 Year
  Sex: Female

DRUGS (7)
  1. ENBREL [Suspect]
     Indication: RHEUMATOID ARTHRITIS
     Dosage: UNSPECIFIED
     Route: 058
     Dates: start: 20090812, end: 20091211
  2. PREDNISOLONE [Concomitant]
     Dosage: UNSPECIFIED
     Route: 048
  3. PYRIDOXAL PHOSPHATE [Concomitant]
     Dosage: UNSPECIFIED
     Route: 048
  4. GASTROM [Concomitant]
     Dosage: UNSPECIFIED
     Route: 048
  5. ISCOTIN [Concomitant]
     Dosage: UNSPECIFIED
     Route: 048
  6. METHOTREXATE [Concomitant]
     Dosage: UNSPECIFIED
     Route: 048
  7. ETODOLAC [Concomitant]
     Dosage: UNSPECIFIED
     Route: 048

REACTIONS (1)
  - PNEUMOCYSTIS JIROVECI PNEUMONIA [None]
